FAERS Safety Report 14985825 (Version 1)
Quarter: 2018Q2

REPORT INFORMATION
  Report Type: Spontaneous
  Country: US (occurrence: US)
  Receive Date: 20180607
  Receipt Date: 20180607
  Transmission Date: 20180711
  Serious: No
  Sender: FDA-Public Use
  Company Number: US-HORIZON-PEN-0387-2018

PATIENT
  Age: 51 Year
  Sex: Male

DRUGS (1)
  1. PENNSAID [Suspect]
     Active Substance: DICLOFENAC SODIUM
     Indication: LIMB INJURY
     Dosage: 2/3 OF A PUMP ONCE A DAY
     Dates: start: 20180503, end: 20180506

REACTIONS (2)
  - Off label use [Unknown]
  - Application site rash [Recovering/Resolving]

NARRATIVE: CASE EVENT DATE: 20180503
